FAERS Safety Report 6362418-X (Version None)
Quarter: 2009Q3

REPORT INFORMATION
  Report Type: 
  Country: None (occurrence: None)
  Receive Date: 20090918
  Receipt Date: 20090615
  Transmission Date: 20100115
  Serious: No
  Sender: FDA-Public Use
  Company Number: US-ABBOTT-09P-163-0576737-00

PATIENT
  Sex: Female

DRUGS (7)
  1. HUMIRA [Suspect]
     Indication: ARTHRITIS
     Route: 058
     Dates: start: 20090514
  2. METHOTREXATE [Concomitant]
     Indication: ARTHRITIS
  3. LEXAPRO [Concomitant]
     Indication: DEPRESSION
  4. PERCOCET [Concomitant]
     Indication: INTERVERTEBRAL DISC PROTRUSION
  5. XANAX [Concomitant]
     Indication: ANXIETY
  6. VOLTAREN [Concomitant]
     Indication: ARTHRALGIA
  7. LYRICA [Concomitant]
     Indication: NEURALGIA

REACTIONS (5)
  - DRUG DOSE OMISSION [None]
  - INJECTION SITE HAEMATOMA [None]
  - INJECTION SITE IRRITATION [None]
  - INJECTION SITE PAIN [None]
  - INJECTION SITE PAPULE [None]
